FAERS Safety Report 7621025-9 (Version None)
Quarter: 2011Q3

REPORT INFORMATION
  Report Type: 
  Country: None (occurrence: None)
  Receive Date: 20110719
  Receipt Date: 20100712
  Transmission Date: 20111222
  Serious: No
  Sender: FDA-Public Use
  Company Number: US-KINGPHARMUSA00001-K201000880

PATIENT
  Age: 62 Year
  Sex: Female

DRUGS (8)
  1. KLONOPIN [Concomitant]
  2. LEVOXYL [Suspect]
     Indication: AUTOIMMUNE THYROIDITIS
     Dosage: 162 MCG, QD
     Route: 048
     Dates: end: 20100629
  3. LEVOXYL [Suspect]
     Dosage: 137 MCG, QD
     Route: 048
     Dates: start: 20020101
  4. LEVOXYL [Suspect]
     Dosage: 150 MCG, QD
     Route: 048
  5. LEXAPRO [Suspect]
     Indication: ANXIETY
     Dosage: 20 MG, QD
     Route: 048
     Dates: start: 20090101, end: 20091101
  6. ATENOLOL [Concomitant]
     Dosage: UNK
  7. LIPITOR [Concomitant]
     Dosage: UNK
  8. AMBIEN [Concomitant]
     Dosage: UNK

REACTIONS (3)
  - DEPRESSION [None]
  - HYPERTHYROIDISM [None]
  - THYROXINE FREE INCREASED [None]
